FAERS Safety Report 8100260-X (Version None)
Quarter: 2012Q1

REPORT INFORMATION
  Report Type: 
  Country: None (occurrence: None)
  Receive Date: 20120131
  Receipt Date: 20120130
  Transmission Date: 20120608
  Serious: Yes (Hospitalization, Other)
  Sender: FDA-Public Use
  Company Number: BE-JNJFOC-20110510202

PATIENT
  Age: 56 Year
  Sex: Female
  Weight: 84 kg

DRUGS (6)
  1. GOLIMUMAB [Suspect]
     Indication: RHEUMATOID ARTHRITIS
     Route: 058
     Dates: start: 20110314
  2. GOLIMUMAB [Suspect]
     Route: 058
     Dates: start: 20110215
  3. METHOTREXATE [Suspect]
     Indication: RHEUMATOID ARTHRITIS
     Route: 048
     Dates: start: 20070514, end: 20110220
  4. CHLOROQUINE DIPHOSPHATE [Suspect]
     Indication: RHEUMATOID ARTHRITIS
     Route: 048
     Dates: start: 20070514
  5. TRIAMCINOLONE [Suspect]
     Indication: RHEUMATOID ARTHRITIS
     Route: 048
     Dates: start: 20070514
  6. GOLIMUMAB [Suspect]
     Route: 058
     Dates: start: 20101004

REACTIONS (2)
  - BACTERIAL PYELONEPHRITIS [None]
  - ESCHERICHIA BACTERAEMIA [None]
